FAERS Safety Report 8123861 (Version 4)
Quarter: 2013Q1

REPORT INFORMATION
  Report Type: Spontaneous
  Country: FR (occurrence: FR)
  Receive Date: 20110907
  Receipt Date: 20130207
  Transmission Date: 20140127
  Serious: Yes (Other)
  Sender: FDA-Public Use
  Company Number: FR-PFIZER INC-2011205678

PATIENT
  Age: 11 Year
  Sex: Female

DRUGS (10)
  1. PIPERACILLIN/TAZOBACTAM [Suspect]
     Indication: FEBRILE NEUTROPENIA
     Dosage: UNK
  2. VINCRISTINE [Interacting]
     Indication: ACUTE LYMPHOCYTIC LEUKAEMIA
     Dosage: UNK
  3. PREDNISONE [Concomitant]
     Dosage: UNK
  4. DAUNORUBICIN [Concomitant]
     Dosage: UNK
  5. CYCLOPHOSPHAMIDE [Concomitant]
     Dosage: UNK
  6. L-ASPARAGINASE [Concomitant]
     Dosage: UNK
  7. OMEPRAZOLE [Concomitant]
     Dosage: UNK
  8. HYDROXYZINE [Concomitant]
     Dosage: UNK
  9. AMITRIPTYLINE [Concomitant]
     Dosage: UNK
  10. NALBUPHINE [Concomitant]
     Dosage: UNK

REACTIONS (4)
  - Drug interaction [Unknown]
  - Autonomic neuropathy [Unknown]
  - Ileus paralytic [Recovered/Resolved]
  - Cholestasis [Recovering/Resolving]
